FAERS Safety Report 8317133-X (Version None)
Quarter: 2012Q2

REPORT INFORMATION
  Report Type: 
  Country: None (occurrence: None)
  Receive Date: 20120425
  Receipt Date: 20120410
  Transmission Date: 20120825
  Serious: Yes (Death, Hospitalization)
  Sender: FDA-Public Use
  Company Number: 2012SGN00151

PATIENT
  Age: 66 Year
  Sex: Male
  Weight: 127.4 kg

DRUGS (1)
  1. ADCETRIS [Suspect]
     Indication: DISSEMINATED LARGE CELL LYMPHOMA
     Dosage: 180 MG, Q21D, INTRAVENOUS
     Route: 042
     Dates: start: 20120206, end: 20120206

REACTIONS (8)
  - ANAPLASTIC LARGE CELL LYMPHOMA T- AND NULL-CELL TYPES [None]
  - NEOPLASM PROGRESSION [None]
  - DELIRIUM [None]
  - ASTHENIA [None]
  - SEPSIS [None]
  - URINARY TRACT INFECTION [None]
  - MUSCULAR WEAKNESS [None]
  - METASTASES TO CENTRAL NERVOUS SYSTEM [None]
